FAERS Safety Report 22595241 (Version 1)
Quarter: 2023Q2

REPORT INFORMATION
  Report Type: Spontaneous
  Country: US (occurrence: US)
  Receive Date: 20230613
  Receipt Date: 20230613
  Transmission Date: 20230721
  Serious: Yes (Other)
  Sender: FDA-Public Use
  Company Number: US-PFIZER INC-202300218383

PATIENT
  Age: 59 Year
  Sex: Female

DRUGS (5)
  1. XELJANZ XR [Suspect]
     Active Substance: TOFACITINIB CITRATE
     Dosage: 11 MG, DAILY [11 MG PER DAY]
     Route: 048
     Dates: start: 2018
  2. VITAMIN K [Concomitant]
     Active Substance: PHYTONADIONE
     Dosage: UNK
  3. VITAMIN D NOS [Concomitant]
     Active Substance: VITAMIN D NOS
     Dosage: UNK
  4. FISH OIL [Concomitant]
     Active Substance: FISH OIL
     Dosage: 1000 MG
  5. MAGNESIUM [Concomitant]
     Active Substance: MAGNESIUM
     Dosage: 100 MG

REACTIONS (2)
  - Psoriatic arthropathy [Not Recovered/Not Resolved]
  - Loss of personal independence in daily activities [Unknown]

NARRATIVE: CASE EVENT DATE: 20180101
